FAERS Safety Report 8015689 (Version 4)
Quarter: 2014Q3

REPORT INFORMATION
  Report Type: Report from Study
  Country: IT (occurrence: IT)
  Receive Date: 20110629
  Receipt Date: 20140703
  Transmission Date: 20150326
  Serious: Yes (Hospitalization, Other)
  Sender: FDA-Public Use
  Company Number: PHHO2009IT12806

PATIENT
  Age: 45 Year
  Sex: Female
  Weight: 80 kg

DRUGS (3)
  1. EUTIROX [Concomitant]
     Active Substance: LEVOTHYROXINE SODIUM
     Dosage: 75 MG, UNK
     Route: 048
  2. FEDRA [Concomitant]
  3. FTY [Suspect]
     Active Substance: FINGOLIMOD HYDROCHLORIDE
     Indication: MULTIPLE SCLEROSIS
     Dosage: CODE NOT BROKEN
     Route: 048
     Dates: start: 20080625, end: 20091015

REACTIONS (3)
  - Concomitant disease progression [Recovered/Resolved with Sequelae]
  - Papillary thyroid cancer [Recovered/Resolved with Sequelae]
  - Thyroid neoplasm [Recovered/Resolved with Sequelae]

NARRATIVE: CASE EVENT DATE: 200909
